FAERS Safety Report 19936185 (Version 1)
Quarter: 2021Q4

REPORT INFORMATION
  Report Type: Spontaneous
  Country: US (occurrence: US)
  Receive Date: 20211008
  Receipt Date: 20211008
  Transmission Date: 20220303
  Serious: No
  Sender: FDA-Public Use
  Company Number: US-SA-SAC20211002000040

PATIENT
  Age: 50 Year
  Sex: Female

DRUGS (1)
  1. AUBAGIO [Suspect]
     Active Substance: TERIFLUNOMIDE
     Indication: Multiple sclerosis
     Dosage: UNK UNK, QD, 4 DOSES
     Route: 048
     Dates: start: 20210708, end: 202107

REACTIONS (3)
  - Skin hyperpigmentation [Unknown]
  - Abdominal pain [Unknown]
  - Depressed mood [Unknown]

NARRATIVE: CASE EVENT DATE: 20210701
